FAERS Safety Report 4380383-1 (Version None)
Quarter: 2004Q2

REPORT INFORMATION
  Report Type: 
  Country: None (occurrence: None)
  Receive Date: 20040618
  Receipt Date: 20040607
  Transmission Date: 20050107
  Serious: Yes (Hospitalization)
  Sender: FDA-Public Use
  Company Number: FR-BRISTOL-MYERS SQUIBB COMPANY-12609418

PATIENT
  Age: 73 Year
  Sex: Male

DRUGS (11)
  1. ELISOR [Suspect]
     Route: 048
     Dates: end: 20040423
  2. RIFADIN [Suspect]
     Route: 048
     Dates: start: 20040330, end: 20040423
  3. HEPARINE SODIQUE [Suspect]
     Route: 042
     Dates: end: 20040422
  4. OXACILLIN [Concomitant]
     Dates: start: 20040422, end: 20040430
  5. INEXIUM [Concomitant]
     Dates: start: 20040331
  6. NITRIDERM TTS [Concomitant]
     Dates: start: 20040324
  7. LASILIX [Concomitant]
  8. TRIATEC [Concomitant]
  9. JOSIR [Concomitant]
  10. XANAX [Concomitant]
  11. STILNOX [Concomitant]

REACTIONS (3)
  - BLOOD CREATININE INCREASED [None]
  - BLOOD UREA INCREASED [None]
  - RENAL FAILURE ACUTE [None]
